FAERS Safety Report 6955925-X (Version None)
Quarter: 2010Q3

REPORT INFORMATION
  Report Type: 
  Country: None (occurrence: None)
  Receive Date: 20100826
  Receipt Date: 20100826
  Transmission Date: 20110219
  Serious: Yes (Hospitalization)
  Sender: FDA-Public Use
  Company Number: None

PATIENT
  Age: 54 Year
  Sex: Female
  Weight: 58.4 kg

DRUGS (5)
  1. TARCEVA [Suspect]
     Indication: NON-SMALL CELL LUNG CANCER METASTATIC
     Dosage: 150MG DAILY PO
     Route: 048
  2. TARCEVA [Concomitant]
  3. FIBERCON [Concomitant]
  4. COUMADIN [Concomitant]
  5. MORPHINE [Concomitant]

REACTIONS (4)
  - BLOOD PRESSURE INCREASED [None]
  - FALL [None]
  - ISCHAEMIC CEREBRAL INFARCTION [None]
  - VOCAL CORD PARALYSIS [None]
